FAERS Safety Report 8551918 (Version 3)
Quarter: 2013Q2

REPORT INFORMATION
  Report Type: Report from Study
  Country: CA (occurrence: CA)
  Receive Date: 20120508
  Receipt Date: 20130612
  Transmission Date: 20140414
  Serious: Yes (Other)
  Sender: FDA-Public Use
  Company Number: CA-ROCHE-1063374

PATIENT
  Sex: Male
  Weight: 103 kg

DRUGS (10)
  1. ACTEMRA [Suspect]
     Indication: RHEUMATOID ARTHRITIS
     Dosage: DOSE INTERRUPTED
     Route: 042
     Dates: start: 20111101, end: 20130509
  2. ACTEMRA [Suspect]
     Route: 042
     Dates: start: 20111128
  3. ACTEMRA [Suspect]
     Route: 042
     Dates: start: 20111101, end: 20130509
  4. METHOTREXATE [Concomitant]
     Route: 058
  5. AMLOPIDINE DURA [Concomitant]
  6. TYLENOL #3 (CANADA) [Concomitant]
  7. ARAVA [Concomitant]
  8. ZYLOPRIM [Concomitant]
  9. FOLIC ACID [Concomitant]
  10. PREDNISONE [Concomitant]

REACTIONS (3)
  - Prostatomegaly [Unknown]
  - Blood urine present [Unknown]
  - Drug ineffective [Not Recovered/Not Resolved]
